FAERS Safety Report 11272002 (Version 3)
Quarter: 2015Q3

REPORT INFORMATION
  Report Type: Spontaneous
  Country: JP (occurrence: None)
  Receive Date: 20150713
  Receipt Date: 20150804
  Transmission Date: 20151125
  Serious: Yes (Life-Threatening, Hospitalization, Other)
  Sender: FDA-Public Use
  Company Number: 2015FE02335

PATIENT
  Sex: Male
  Weight: 51 kg

DRUGS (2)
  1. GONAX (DEGARELIX) POWDER AND SOLVENT FOR SOLUTION FOR INJECTION [Suspect]
     Active Substance: DEGARELIX
     Indication: PRODUCT USED FOR UNKNOWN INDICATION
     Route: 058
     Dates: start: 20140606, end: 20140606
  2. BICALUTAMIDE ACCORD (BICALUTAMIDE) [Concomitant]

REACTIONS (2)
  - Anaphylactic reaction [None]
  - Anaphylactic shock [None]

NARRATIVE: CASE EVENT DATE: 20150703
